FAERS Safety Report 4473835-7 (Version None)
Quarter: 2004Q4

REPORT INFORMATION
  Report Type: 
  Country: None (occurrence: None)
  Receive Date: 20041008
  Receipt Date: 20041008
  Transmission Date: 20050328
  Serious: Yes (Other)
  Sender: FDA-Public Use
  Company Number: None

PATIENT
  Age: 21 Year
  Sex: Female
  Weight: 73.9363 kg

DRUGS (4)
  1. CEFTRIAXONE [Suspect]
     Indication: PYELONEPHRITIS
     Dosage: 1 GRAM, QD IV
     Route: 042
     Dates: start: 20040907, end: 20040910
  2. LAMOTRIGINE [Concomitant]
  3. FAMOTIDINE [Concomitant]
  4. ZOLPIDEM TRATRATE [Concomitant]

REACTIONS (1)
  - RED BLOOD CELL COUNT DECREASED [None]
